FAERS Safety Report 9343906 (Version 1)
Quarter: 2013Q2

REPORT INFORMATION
  Report Type: Spontaneous
  Country: JP (occurrence: None)
  Receive Date: 20130610
  Receipt Date: 20130610
  Transmission Date: 20140414
  Serious: Yes (Life-Threatening, Other)
  Sender: FDA-Public Use
  Company Number: 2013P1006711

PATIENT
  Age: 63 Year
  Sex: Female

DRUGS (1)
  1. FAMOTIDINE [Suspect]

REACTIONS (1)
  - Tubulointerstitial nephritis [None]
